FAERS Safety Report 10174124 (Version 1)
Quarter: 2014Q2

REPORT INFORMATION
  Report Type: Spontaneous
  Country: US (occurrence: US)
  Receive Date: 20140515
  Receipt Date: 20140515
  Transmission Date: 20141212
  Serious: Yes (Hospitalization, Other)
  Sender: FDA-Public Use
  Company Number: US-GILEAD-2014-0102417

PATIENT
  Age: 74 Year
  Sex: Female

DRUGS (1)
  1. LETAIRIS [Suspect]
     Indication: PRODUCT USED FOR UNKNOWN INDICATION
     Dosage: 5 MG, QD
     Route: 065
     Dates: start: 20130329

REACTIONS (5)
  - Renal failure [Unknown]
  - Anuria [Recovered/Resolved]
  - Oophorectomy [Recovered/Resolved]
  - Pharyngeal oedema [Recovered/Resolved]
  - Hypersensitivity [Recovered/Resolved]
